FAERS Safety Report 7132139-4 (Version None)
Quarter: 2010Q4

REPORT INFORMATION
  Report Type: 
  Country: None (occurrence: None)
  Receive Date: 20101202
  Receipt Date: 20101128
  Transmission Date: 20110411
  Serious: Yes (Hospitalization, Other)
  Sender: FDA-Public Use
  Company Number: SA-SANOFI-AVENTIS-2010SA057129

PATIENT
  Age: 8 Year
  Sex: Female
  Weight: 33.2 kg

DRUGS (4)
  1. SOLOSTAR [Suspect]
     Indication: TYPE 1 DIABETES MELLITUS
     Dates: start: 20100917, end: 20100917
  2. APIDRA SOLOSTAR [Suspect]
     Route: 058
     Dates: start: 20100917, end: 20100917
  3. SOLOSTAR [Suspect]
  4. LANTUS SOLOSTAR [Suspect]
     Route: 058

REACTIONS (5)
  - ACCIDENTAL OVERDOSE [None]
  - HEADACHE [None]
  - HYPOGLYCAEMIA [None]
  - VOMITING [None]
  - WRONG DRUG ADMINISTERED [None]
